FAERS Safety Report 5830285-6 (Version None)
Quarter: 2008Q3

REPORT INFORMATION
  Report Type: 
  Country: None (occurrence: None)
  Receive Date: 20080801
  Receipt Date: 20080721
  Transmission Date: 20090109
  Serious: Yes (Hospitalization, Other)
  Sender: FDA-Public Use
  Company Number: US-ELI_LILLY_AND_COMPANY-US200807004323

PATIENT
  Sex: Female

DRUGS (17)
  1. FORTEO [Suspect]
     Indication: OSTEOPOROSIS
     Dates: start: 20070101
  2. HUMALOG [Concomitant]
     Dosage: 22 U, EACH MORNING
  3. HUMALOG [Concomitant]
     Dosage: 18 U, EACH EVENING
  4. DIGOXIN [Concomitant]
     Dosage: 0.25 UNK, QOD
  5. LIPITOR [Concomitant]
     Dosage: 20 MG, EACH EVENING
  6. LISINOPRIL [Concomitant]
     Dosage: 40 MG, UNK
  7. TORSEMIDE [Concomitant]
     Dosage: 20 MG, DAILY (1/D)
  8. HECTOROL [Concomitant]
     Dosage: 0.5 UNK, DAILY (1/D)
  9. CITALOPRAM HYDROBROMIDE [Concomitant]
     Dosage: 20 MG, UNK
  10. ALISKIREN [Concomitant]
  11. AMLODIPINE [Concomitant]
  12. ASPIRIN [Concomitant]
     Dosage: 81 MG, UNK
  13. MULTI-VITAMIN [Concomitant]
  14. SELENIUM [Concomitant]
     Dosage: 200 U, UNK
  15. CO-Q10 [Concomitant]
     Dosage: 75 MG, UNK
  16. IRON [Concomitant]
  17. VITAMIN D [Concomitant]
     Dosage: 800 U, UNK

REACTIONS (5)
  - BLOOD GLUCOSE INCREASED [None]
  - CERVICAL VERTEBRAL FRACTURE [None]
  - DEHYDRATION [None]
  - FALL [None]
  - NECK PAIN [None]
